FAERS Safety Report 4939887-2 (Version None)
Quarter: 2006Q1

REPORT INFORMATION
  Report Type: 
  Country: None (occurrence: None)
  Receive Date: 20060310
  Receipt Date: 20060201
  Transmission Date: 20060701
  Serious: Yes (Other)
  Sender: FDA-Public Use
  Company Number: CA-GLAXOSMITHKLINE-A0592697A

PATIENT
  Sex: Female

DRUGS (5)
  1. ADVAIR DISKUS 100/50 [Suspect]
     Route: 055
  2. PAXIL [Suspect]
  3. ANTIBIOTIC [Concomitant]
  4. INSULIN [Concomitant]
  5. CONCURRENT MEDICATIONS [Concomitant]

REACTIONS (4)
  - DYSPNOEA [None]
  - HYPOGLYCAEMIA [None]
  - MALAISE [None]
  - VOMITING [None]
